FAERS Safety Report 5071643-X (Version None)
Quarter: 2006Q3

REPORT INFORMATION
  Report Type: 
  Country: None (occurrence: None)
  Receive Date: 20060803
  Receipt Date: 20060803
  Transmission Date: 20061208
  Serious: No
  Sender: FDA-Public Use
  Company Number: None

PATIENT
  Sex: Female

DRUGS (2)
  1. FENTANYL [Suspect]
     Indication: PAIN
     Dosage: 12.5 MCG PER HOUR TOP
     Route: 061
  2. FENTANYL [Suspect]
     Dosage: 125 MCG PER HOUR TOP
     Route: 061

REACTIONS (2)
  - INTERCEPTED DRUG DISPENSING ERROR [None]
  - INTERCEPTED MEDICATION ERROR [None]
